FAERS Safety Report 8006109-8 (Version None)
Quarter: 2011Q4

REPORT INFORMATION
  Report Type: 
  Country: None (occurrence: None)
  Receive Date: 20111226
  Receipt Date: 20111213
  Transmission Date: 20120403
  Serious: Yes (Other)
  Sender: FDA-Public Use
  Company Number: JP-PFIZER INC-2011311236

PATIENT
  Age: 50 Year
  Sex: Male
  Weight: 79.1 kg

DRUGS (16)
  1. LIPITOR [Suspect]
     Indication: NEPHROTIC SYNDROME
  2. NOVO HEPARIN [Concomitant]
  3. DIART [Concomitant]
  4. PREDNISOLONE [Concomitant]
  5. ALENDRONATE SODIUM [Suspect]
     Indication: PROPHYLAXIS
     Dosage: 35 MG, WEEKLY(EVERY SATURDAY)
     Route: 048
     Dates: start: 20110316, end: 20110727
  6. LEVOTHYROXINE SODIUM [Concomitant]
  7. RABEPRAZOLE SODIUM [Concomitant]
  8. LIPITOR [Suspect]
     Indication: PROPHYLAXIS
     Dosage: 10 MG, UID/QD
     Route: 048
     Dates: start: 20110520, end: 20110606
  9. SULFAMETHOXAZOLE AND TRIMETHOPRIM [Suspect]
     Indication: PROPHYLAXIS
     Dosage: 2 DF, UID/QD
     Route: 048
     Dates: start: 20110727, end: 20110727
  10. WARFARIN [Concomitant]
  11. ALFAROL [Concomitant]
  12. LASIX [Suspect]
     Indication: NEPHROTIC SYNDROME
     Dosage: 20 MG, 2X/DAY
     Route: 048
     Dates: end: 20110608
  13. LANSOPRAZOLE [Suspect]
     Indication: PROPHYLAXIS
     Dosage: 15 MG, UID/QD
     Route: 048
     Dates: start: 20110521, end: 20110606
  14. TRICHLORMETHIAZIDE [Suspect]
     Indication: NEPHROTIC SYNDROME
     Dosage: 2 MG, UID/QD
     Route: 048
     Dates: end: 20110606
  15. EPADEL [Concomitant]
  16. SILECE [Concomitant]

REACTIONS (2)
  - THROMBOCYTOPENIA [None]
  - AGRANULOCYTOSIS [None]
